FAERS Safety Report 8502995-3 (Version None)
Quarter: 2012Q3

REPORT INFORMATION
  Report Type: 
  Country: None (occurrence: None)
  Receive Date: 20120711
  Receipt Date: 20120705
  Transmission Date: 20120928
  Serious: Yes (Other)
  Sender: FDA-Public Use
  Company Number: PHHY2012CA058939

PATIENT
  Sex: Female

DRUGS (3)
  1. ABRAXANE [Suspect]
  2. DOCETAXEL [Suspect]
  3. FEMARA [Suspect]

REACTIONS (3)
  - NEOPLASM MALIGNANT [None]
  - NEOPLASM PROGRESSION [None]
  - NEUROPATHY PERIPHERAL [None]
